FAERS Safety Report 8394731-9 (Version None)
Quarter: 2012Q2

REPORT INFORMATION
  Report Type: 
  Country: None (occurrence: None)
  Receive Date: 20120529
  Receipt Date: 20120529
  Transmission Date: 20120825
  Serious: No
  Sender: FDA-Public Use
  Company Number: None

PATIENT
  Sex: Male

DRUGS (1)
  1. REMERON [Suspect]
     Indication: MAJOR DEPRESSION
     Dosage: 15MG ONCE QD PO
     Route: 048
     Dates: start: 20120217

REACTIONS (2)
  - PRURITUS [None]
  - RASH [None]
